FAERS Safety Report 12972380 (Version 1)
Quarter: 2016Q4

REPORT INFORMATION
  Report Type: Report from Study
  Country: KR (occurrence: KR)
  Receive Date: 20161124
  Receipt Date: 20161124
  Transmission Date: 20170207
  Serious: No
  Sender: FDA-Public Use
  Company Number: KR-PROSTRAKAN-2016-KR-0007

PATIENT

DRUGS (8)
  1. ATROPINE SULFATE. [Concomitant]
     Active Substance: ATROPINE SULFATE
     Indication: PROPHYLAXIS
     Dosage: UNKNOWN
     Route: 065
     Dates: start: 20130715, end: 20130715
  2. CRABCAN [Concomitant]
     Indication: PROPHYLAXIS OF NAUSEA AND VOMITING
     Dosage: UNKNOWN
     Route: 065
     Dates: start: 20130715, end: 20130715
  3. GASTER [Concomitant]
     Active Substance: FAMOTIDINE
     Indication: PROPHYLAXIS
     Dosage: UNKNOWN
     Route: 065
     Dates: start: 20130715, end: 20130717
  4. FERBON [Concomitant]
     Indication: PROPHYLAXIS
     Dosage: UNKNOWN
     Route: 065
     Dates: start: 20130715, end: 20130716
  5. DEXAMETHASONE. [Concomitant]
     Active Substance: DEXAMETHASONE
     Indication: PROPHYLAXIS OF NAUSEA AND VOMITING
     Dosage: UNKNOWN
     Route: 065
     Dates: start: 20130715, end: 20130717
  6. GRANISETRON [Suspect]
     Active Substance: GRANISETRON
     Indication: PRODUCT USED FOR UNKNOWN INDICATION
     Dosage: UNKNOWN
     Route: 062
     Dates: start: 20130714, end: 20130718
  7. ALOXI [Concomitant]
     Active Substance: PALONOSETRON HYDROCHLORIDE
     Indication: PROPHYLAXIS OF NAUSEA AND VOMITING
     Route: 065
     Dates: start: 20130715, end: 20130715
  8. 5-FLUOROURACIL [Concomitant]
     Active Substance: FLUOROURACIL
     Indication: PROPHYLAXIS OF NAUSEA AND VOMITING
     Route: 065
     Dates: start: 20130715, end: 20130716

REACTIONS (2)
  - Nausea [Recovered/Resolved]
  - Neutrophil count decreased [Recovered/Resolved]

NARRATIVE: CASE EVENT DATE: 20130716
